FAERS Safety Report 5222977-7 (Version None)
Quarter: 2007Q1

REPORT INFORMATION
  Report Type: 
  Country: None (occurrence: None)
  Receive Date: 20070129
  Receipt Date: 20070117
  Transmission Date: 20070707
  Serious: Yes (Hospitalization, Other)
  Sender: FDA-Public Use
  Company Number: US-PFIZER INC-2006133100

PATIENT
  Sex: Male
  Weight: 32.7 kg

DRUGS (5)
  1. ZITHROMAX [Suspect]
     Indication: PNEUMONIA
     Dosage: DAILY DOSE:250MG
     Route: 048
     Dates: start: 20061009, end: 20061013
  2. ZITHROMAX [Suspect]
     Indication: OTITIS MEDIA
     Dosage: DAILY DOSE:250MG
     Route: 048
     Dates: start: 20061026, end: 20061030
  3. ADVIL [Concomitant]
  4. ADVIL [Concomitant]
     Dates: start: 20061024, end: 20061025
  5. VENTOLIN [Concomitant]

REACTIONS (3)
  - ILEUS [None]
  - PLATELET COUNT DECREASED [None]
  - WHITE BLOOD CELL COUNT DECREASED [None]
